FAERS Safety Report 4811558-2 (Version None)
Quarter: 2005Q4

REPORT INFORMATION
  Report Type: 
  Country: None (occurrence: None)
  Receive Date: 20051025
  Receipt Date: 20051013
  Transmission Date: 20060501
  Serious: Yes (Hospitalization, Other)
  Sender: FDA-Public Use
  Company Number: 2005126079

PATIENT
  Age: 66 Year
  Sex: Male

DRUGS (6)
  1. VIAGRA [Suspect]
     Indication: ERECTILE DYSFUNCTION
     Dosage: 50 MG (PRN), ORAL
     Route: 048
     Dates: start: 19990901
  2. FLIVAS (NAFTOPIDIL) [Concomitant]
  3. EVIPROSTAT (CHIMAPHILA UMBELLATA, EQUISETUM ARVENSE, MANGANESE CHLORID [Concomitant]
  4. DETANTOL (BUNAZOSIN HYDROCHLORIDE) [Concomitant]
  5. LATANOPROST [Concomitant]
  6. UBRETID (DISTIGMINE BROMIDE) [Concomitant]

REACTIONS (7)
  - DIABETIC RETINOPATHY [None]
  - GLAUCOMA [None]
  - GLAUCOMATOUS OPTIC DISC ATROPHY [None]
  - MACULAR OEDEMA [None]
  - PETECHIAE [None]
  - RETINAL HAEMORRHAGE [None]
  - RETINAL VEIN THROMBOSIS [None]
